FAERS Safety Report 10682808 (Version 2)
Quarter: 2015Q1

REPORT INFORMATION
  Report Type: Report from Study
  Country: KR (occurrence: KR)
  Receive Date: 20141230
  Receipt Date: 20150106
  Transmission Date: 20150720
  Serious: Yes (Death)
  Sender: FDA-Public Use
  Company Number: KR-SA-2014SA179454

PATIENT
  Age: 69 Year
  Sex: Male

DRUGS (10)
  1. NASEA [Concomitant]
     Active Substance: RAMOSETRON HYDROCHLORIDE
     Dates: start: 20141216, end: 20141217
  2. MACPERAN [Concomitant]
     Dates: start: 20141222, end: 20141223
  3. DOCETAXEL. [Suspect]
     Active Substance: DOCETAXEL
     Indication: NEOPLASM
     Route: 042
     Dates: start: 20141215, end: 20141215
  4. S-1 [Suspect]
     Active Substance: GIMERACIL\OTERACIL\TEGAFUR
     Indication: NEOPLASM
     Route: 048
     Dates: start: 20141215, end: 20141223
  5. NASEA [Concomitant]
     Active Substance: RAMOSETRON HYDROCHLORIDE
     Dates: start: 20141215, end: 20141215
  6. OXALIPLATIN. [Suspect]
     Active Substance: OXALIPLATIN
     Indication: NEOPLASM
     Route: 042
     Dates: start: 20141215, end: 20141215
  7. ZANTAC [Concomitant]
     Active Substance: RANITIDINE HYDROCHLORIDE
     Indication: PROPHYLAXIS
     Dates: start: 20141215, end: 20141217
  8. SODIUM BICARBONATE. [Concomitant]
     Active Substance: SODIUM BICARBONATE
     Indication: PROPHYLAXIS
     Dates: start: 20141215, end: 20141223
  9. DEXAMETHASONE. [Concomitant]
     Active Substance: DEXAMETHASONE
     Indication: PROPHYLAXIS
     Dates: start: 20141215, end: 20141217
  10. DEXAMETHASONE. [Concomitant]
     Active Substance: DEXAMETHASONE
     Indication: PROPHYLAXIS
     Dates: start: 20141215, end: 20141215

REACTIONS (1)
  - Dyspnoea [Fatal]

NARRATIVE: CASE EVENT DATE: 20141223
